FAERS Safety Report 8524988-2 (Version None)
Quarter: 2012Q3

REPORT INFORMATION
  Report Type: 
  Country: None (occurrence: None)
  Receive Date: 20120720
  Receipt Date: 20120718
  Transmission Date: 20120928
  Serious: Yes (Hospitalization)
  Sender: FDA-Public Use
  Company Number: CA-ROCHE-1089018

PATIENT
  Sex: Male
  Weight: 55.842 kg

DRUGS (6)
  1. SOFLAX (CANADA) [Concomitant]
  2. HYDROMORPHONE HCL [Concomitant]
  3. LACTULOSE [Concomitant]
  4. VEMURAFENIB [Suspect]
     Indication: METASTATIC MALIGNANT MELANOMA
     Route: 048
     Dates: start: 20120601, end: 20120701
  5. SENOKOT [Concomitant]
  6. DEXAMETHASONE [Concomitant]

REACTIONS (2)
  - DYSPHAGIA [None]
  - DECREASED APPETITE [None]
